FAERS Safety Report 8371166-6 (Version None)
Quarter: 2012Q2

REPORT INFORMATION
  Report Type: 
  Country: None (occurrence: None)
  Receive Date: 20120517
  Receipt Date: 20120501
  Transmission Date: 20120825
  Serious: Yes (Hospitalization)
  Sender: FDA-Public Use
  Company Number: 2012-221

PATIENT
  Sex: Female

DRUGS (3)
  1. BUPIVACAINE HCL [Suspect]
     Dosage: UKN MG, ONCE/HOUR, INTRATHECAL
     Route: 037
  2. FENTANYL [Suspect]
     Dosage: UNK UG, ONCE/HOUR, INTRATHECAL
     Route: 037
  3. PRIALT [Suspect]
     Indication: DIABETIC NEUROPATHY
     Dosage: 0.2 UG, ONCE/HOUR, INTRATHECAL
     Route: 037
     Dates: start: 20110701

REACTIONS (1)
  - FLUID RETENTION [None]
